FAERS Safety Report 16492550 (Version 3)
Quarter: 2019Q3

REPORT INFORMATION
  Report Type: Spontaneous
  Country: US (occurrence: US)
  Receive Date: 20190628
  Receipt Date: 20190709
  Transmission Date: 20191004
  Serious: Yes (Death)
  Sender: FDA-Public Use
  Company Number: US-CELGENEUS-USA-20190608188

PATIENT
  Age: 73 Year
  Sex: Female

DRUGS (2)
  1. ABRAXANE [Suspect]
     Active Substance: PACLITAXEL
     Indication: OFF LABEL USE
  2. ABRAXANE [Suspect]
     Active Substance: PACLITAXEL
     Indication: CERVIX NEOPLASM
     Dosage: 70 MILLIGRAM
     Route: 041
     Dates: start: 20190415, end: 20190619

REACTIONS (1)
  - Cervix neoplasm [Fatal]

NARRATIVE: CASE EVENT DATE: 20190619
